FAERS Safety Report 5480874-6 (Version None)
Quarter: 2007Q4

REPORT INFORMATION
  Report Type: 
  Country: None (occurrence: None)
  Receive Date: 20071004
  Receipt Date: 20070919
  Transmission Date: 20080405
  Serious: Yes (Death)
  Sender: FDA-Public Use
  Company Number: S07-FRA-05252-01

PATIENT
  Age: 43 Year
  Sex: Male

DRUGS (5)
  1. ESCITALOPRAM [Suspect]
     Dosage: 10 MG QD PO
     Route: 048
     Dates: start: 20060101
  2. NEORAL [Concomitant]
  3. TRAMADOL HCL [Concomitant]
  4. DUROGESXC (PRNTANYL) [Concomitant]
  5. XANAX [Concomitant]

REACTIONS (2)
  - HYPERTHERMIA MALIGNANT [None]
  - TOXIC SHOCK SYNDROME [None]
